FAERS Safety Report 9128313 (Version 1)
Quarter: 2013Q1

REPORT INFORMATION
  Report Type: Spontaneous
  Country: US (occurrence: US)
  Receive Date: 20130125
  Receipt Date: 20130125
  Transmission Date: 20140127
  Serious: Yes (Other)
  Sender: FDA-Public Use
  Company Number: US-BAYER-2013-008545

PATIENT
  Age: 65 Year
  Sex: Male
  Weight: 63.49 kg

DRUGS (4)
  1. BAYER GENUINE ASPIRIN ORIGINAL STRENGTH [Suspect]
     Indication: ISCHAEMIC HEART DISEASE PROPHYLAXIS
     Dosage: 1 DF, QD
     Route: 048
     Dates: end: 1984
  2. VITAMIN E [Concomitant]
  3. VITAMIN C [Concomitant]
  4. THYROID PREPARATIONS [Concomitant]

REACTIONS (2)
  - Large intestinal ulcer [Recovered/Resolved]
  - Inappropriate schedule of drug administration [None]
